FAERS Safety Report 9120038 (Version 2)
Quarter: 2013Q2

REPORT INFORMATION
  Report Type: Spontaneous
  Country: US (occurrence: US)
  Receive Date: 20130226
  Receipt Date: 20130404
  Transmission Date: 20140414
  Serious: No
  Sender: FDA-Public Use
  Company Number: US-ASTRAZENECA-2013SE10754

PATIENT
  Age: 67 Year
  Sex: Female
  Weight: 92.1 kg

DRUGS (15)
  1. NEXIUM [Suspect]
     Dosage: DAILY
     Route: 048
  2. CRESTOR [Suspect]
     Route: 048
  3. BRILINTA [Suspect]
     Indication: ANTIPLATELET THERAPY
     Route: 048
     Dates: start: 20120829, end: 20130208
  4. HYDROCHLOROTHIAZIDE, TRIAMTERENE [Concomitant]
     Dosage: 75/50 MG, HALF TABLET, DAILY
     Route: 048
  5. ASPIRIN [Concomitant]
     Indication: ANTIPLATELET THERAPY
     Route: 048
     Dates: start: 20120815
  6. AMLODIPINE [Concomitant]
     Route: 048
  7. LEVOTHYROXINE [Concomitant]
     Route: 048
  8. ADVAIR [Concomitant]
     Dosage: BID
     Route: 055
  9. COMBIVENT [Concomitant]
     Dosage: AS NEEDED
     Route: 055
  10. CITALOPRAM [Concomitant]
     Route: 048
  11. REGLAN [Concomitant]
     Route: 048
  12. NITROGLYCERINE [Concomitant]
     Indication: CHEST PAIN
     Dosage: AS NEEDED
     Route: 050
  13. METHOCARBAMOL [Concomitant]
     Route: 048
  14. FLUNISOLIDE [Concomitant]
     Route: 048
  15. LEXISCAN [Concomitant]

REACTIONS (1)
  - Dyspnoea [Recovered/Resolved]
